FAERS Safety Report 6061443-6 (Version None)
Quarter: 2009Q1

REPORT INFORMATION
  Report Type: 
  Country: None (occurrence: None)
  Receive Date: 20090202
  Receipt Date: 20090116
  Transmission Date: 20090719
  Serious: Yes (Other)
  Sender: FDA-Public Use
  Company Number: US-PFIZER INC-2009155993

PATIENT
  Sex: Female
  Weight: 69.4 kg

DRUGS (7)
  1. XALATAN [Suspect]
     Indication: GLAUCOMA
     Dosage: 1 GTT, 1X/DAY
  2. ALPHAGAN [Suspect]
     Indication: GLAUCOMA
  3. COSOPT [Suspect]
     Indication: GLAUCOMA
  4. LORAZEPAM [Concomitant]
     Dosage: UNK
  5. CLONAZEPAM [Concomitant]
     Dosage: UNK
  6. MIRTAZAPINE [Concomitant]
     Dosage: UNK
  7. CITALOPRAM HYDROBROMIDE [Concomitant]
     Dosage: UNK

REACTIONS (6)
  - CIRCUMSTANCE OR INFORMATION CAPABLE OF LEADING TO MEDICATION ERROR [None]
  - DRUG PRESCRIBING ERROR [None]
  - INTRAOCULAR PRESSURE FLUCTUATION [None]
  - INTRAOCULAR PRESSURE INCREASED [None]
  - LEUKAEMIA [None]
  - THYROID CANCER [None]
